FAERS Safety Report 14255798 (Version 1)
Quarter: 2017Q4

REPORT INFORMATION
  Report Type: Report from Study
  Country: US (occurrence: US)
  Receive Date: 20171206
  Receipt Date: 20171206
  Transmission Date: 20180321
  Serious: Yes (Death)
  Sender: FDA-Public Use
  Company Number: US-EISAI MEDICAL RESEARCH-EC-2017-030153

PATIENT
  Age: 53 Year
  Sex: Male
  Weight: 102.97 kg

DRUGS (17)
  1. MAG-AL PLUS [Concomitant]
     Active Substance: ALUMINUM HYDROXIDE\DIMETHICONE\MAGNESIUM HYDROXIDE
  2. TYLENOL [Concomitant]
     Active Substance: ACETAMINOPHEN
  3. AMLODIPINE [Concomitant]
     Active Substance: AMLODIPINE BESYLATE
  4. ADVIL [Concomitant]
     Active Substance: IBUPROFEN
  5. LENVIMA [Suspect]
     Active Substance: LENVATINIB
     Indication: THYROID CANCER
     Route: 048
     Dates: start: 20170729, end: 2017
  6. REGLAN [Concomitant]
     Active Substance: METOCLOPRAMIDE HYDROCHLORIDE
  7. AFLURIA QUAD [Concomitant]
  8. METHYLPHENIDATE HYDROCHLORIDE. [Concomitant]
     Active Substance: METHYLPHENIDATE HYDROCHLORIDE
  9. COMPAZINE [Concomitant]
     Active Substance: PROCHLORPERAZINE MALEATE
  10. DELSYM [Concomitant]
     Active Substance: DEXTROMETHORPHAN
  11. MUCINEX [Concomitant]
     Active Substance: GUAIFENESIN
  12. LEVOXYL [Concomitant]
     Active Substance: LEVOTHYROXINE SODIUM
  13. HYDROCHLOROTHIAZIDE. [Concomitant]
     Active Substance: HYDROCHLOROTHIAZIDE
  14. ATENOLOL. [Concomitant]
     Active Substance: ATENOLOL
  15. LISINOPRIL. [Concomitant]
     Active Substance: LISINOPRIL
  16. IMODIUM [Concomitant]
     Active Substance: LOPERAMIDE HYDROCHLORIDE
  17. ZOFRAN [Concomitant]
     Active Substance: ONDANSETRON HYDROCHLORIDE

REACTIONS (14)
  - Decreased appetite [Unknown]
  - Delusion [Unknown]
  - Blood pressure increased [Unknown]
  - Diarrhoea [Unknown]
  - Rectal discharge [Unknown]
  - Pneumonia [Unknown]
  - Flatulence [Unknown]
  - Cough [Unknown]
  - Cardiac failure [Fatal]
  - Headache [Unknown]
  - Neuropathy peripheral [Unknown]
  - Somnolence [Unknown]
  - Blood glucose increased [Unknown]
  - Fatigue [Unknown]

NARRATIVE: CASE EVENT DATE: 2017
